FAERS Safety Report 9715347 (Version 5)
Quarter: 2013Q4

REPORT INFORMATION
  Report Type: Spontaneous
  Country: CA (occurrence: CA)
  Receive Date: 20131127
  Receipt Date: 20131211
  Transmission Date: 20140711
  Serious: Yes (Hospitalization, Other)
  Sender: FDA-Public Use
  Company Number: CA-ROCHE-1306557

PATIENT
  Age: 82 Year
  Sex: Female

DRUGS (6)
  1. XOLAIR [Suspect]
     Indication: ASTHMA
     Route: 058
     Dates: start: 20130403
  2. XOLAIR [Suspect]
     Route: 058
     Dates: start: 20131018
  3. SPIRIVA [Concomitant]
  4. VENTOLIN [Concomitant]
  5. ZITHROMAX [Concomitant]
  6. SYMBICORT [Concomitant]

REACTIONS (1)
  - Anaphylactic reaction [Unknown]
